FAERS Safety Report 7816841-4 (Version None)
Quarter: 2011Q4

REPORT INFORMATION
  Report Type: 
  Country: None (occurrence: None)
  Receive Date: 20111013
  Receipt Date: 20110930
  Transmission Date: 20120403
  Serious: Yes (Death)
  Sender: FDA-Public Use
  Company Number: ACO_27159_2011

PATIENT
  Age: 55 Year
  Sex: Female

DRUGS (1)
  1. AMPYRA [Suspect]
     Indication: GAIT DISTURBANCE
     Dosage: 10 MG, BID, ORAL
     Route: 048
     Dates: start: 20100823

REACTIONS (2)
  - TERMINAL STATE [None]
  - NEOPLASM MALIGNANT [None]
